FAERS Safety Report 5753519 (Version 1)
Quarter: 2020Q3

REPORT INFORMATION
  Report Type: Report from Study
  Country: BE (occurrence: BE)
  Receive Date: 20050309
  Receipt Date: 20050309
  Transmission Date: 20201105
  Serious: Yes (Hospitalization)
  Sender: FDA-Public Use
  Company Number: BE-JNJFOC-20031002493

PATIENT
  Age: 41 Year
  Sex: Male

DRUGS (13)
  1. INFLIXIMAB [Suspect]
     Active Substance: INFLIXIMAB
     Route: 042
  2. PIROXICAM. [Concomitant]
     Active Substance: PIROXICAM
  3. INFLIXIMAB [Suspect]
     Active Substance: INFLIXIMAB
     Route: 042
  4. METHOTREXATE. [Suspect]
     Active Substance: METHOTREXATE
  5. FOLIC ACID. [Concomitant]
     Active Substance: FOLIC ACID
     Route: 049
  6. TENORETIC [Concomitant]
     Active Substance: ATENOLOL\CHLORTHALIDONE
  7. INFLIXIMAB [Suspect]
     Active Substance: INFLIXIMAB
     Route: 042
  8. ASAFLOW [Concomitant]
     Indication: ANTICOAGULANT THERAPY
     Route: 049
  9. TENORETIC [Concomitant]
     Active Substance: ATENOLOL\CHLORTHALIDONE
  10. DAFALGAN [Concomitant]
     Active Substance: ACETAMINOPHEN
  11. INFLIXIMAB [Suspect]
     Active Substance: INFLIXIMAB
     Route: 042
  12. MEDROL [Concomitant]
     Active Substance: METHYLPREDNISOLONE
  13. POTASSIUM CHLORIDE. [Concomitant]
     Active Substance: POTASSIUM CHLORIDE

REACTIONS (6)
  - Hyperglycaemia [Recovered/Resolved]
  - Hypokalaemia [None]
  - Hepatotoxicity [Recovered/Resolved]
  - Hepatitis chronic active [Not Recovered/Not Resolved]
  - Type 2 diabetes mellitus [None]
  - Hepatic fibrosis [None]

NARRATIVE: CASE EVENT DATE: 20030626
